FAERS Safety Report 8334082 (Version 2)
Quarter: 2013Q2

REPORT INFORMATION
  Report Type: Spontaneous
  Country: US (occurrence: None)
  Receive Date: 20111130
  Receipt Date: 20120531
  Transmission Date: 20140414
  Serious: Yes (Hospitalization, Disabling, Other)
  Sender: FDA-Public Use
  Company Number: US201106004332

PATIENT
  Age: 56 Year
  Sex: Male
  Weight: 85.3 kg

DRUGS (13)
  1. BYETTA [Suspect]
     Dates: start: 200510
  2. METFORMIN HCL (METFORMIN HYDROCHLORIDE) [Concomitant]
  3. AVANDIA (ROSIGLITAZONE MALEATE) [Concomitant]
  4. LISINOPRIL [Concomitant]
  5. HYDROCHLOROTHIAZIDE [Concomitant]
  6. DIOVAN (VALSARTAN) [Concomitant]
  7. ZOCOR (SIMVASTATIN) [Concomitant]
  8. SIMVASTATIN [Concomitant]
  9. TYLENOL (PARACETAMOL) [Concomitant]
  10. DILTIAZEM [Concomitant]
  11. AVANDAMET (METFORMIN HYDROCHLORIDE, ROSIGLITAZONE MALEATE) [Concomitant]
  12. OXAPROZIN [Concomitant]
  13. CINNAMON (CINNAMOMUM VERUM) [Concomitant]

REACTIONS (3)
  - PANCREATITIS [None]
  - Renal failure acute [None]
  - Weight decreased [None]
